FAERS Safety Report 7414921-9 (Version None)
Quarter: 2011Q2

REPORT INFORMATION
  Report Type: 
  Country: None (occurrence: None)
  Receive Date: 20110414
  Receipt Date: 20090412
  Transmission Date: 20111010
  Serious: Yes (Death, Hospitalization, Other)
  Sender: FDA-Public Use
  Company Number: US-BAYER-200917929NA

PATIENT
  Age: 67 Year
  Sex: Female
  Weight: 47 kg

DRUGS (14)
  1. NORVASC [Concomitant]
     Dosage: 5 MG EVERY NIGHT
     Route: 048
  2. HYDROCHLOROTHIAZIDE [Concomitant]
     Dosage: 25 MG, QD
     Route: 048
     Dates: start: 20040913
  3. NITROGLYCERIN [Concomitant]
     Dosage: 50 MG/500 ML
     Route: 042
     Dates: start: 20051215
  4. RED BLOOD CELLS [Concomitant]
     Dosage: 800 ML, UNK
     Dates: start: 20051215
  5. DOBUTAMINE HCL [Concomitant]
     Dosage: 250 MG/ML, UNK
     Route: 042
     Dates: start: 20051215
  6. TRASYLOL [Suspect]
     Indication: CORONARY ARTERY BYPASS
     Dosage: INITIAL DOSE: 1 ML
     Dates: start: 20051215, end: 20051215
  7. PLATELETS [Concomitant]
     Dosage: 10 PACK
     Dates: start: 20051215
  8. PROCARDIA XL [Concomitant]
     Dosage: 90 MG, QD
     Route: 048
     Dates: start: 20050731
  9. TRASYLOL [Suspect]
     Dosage: LOADING DOSE:200 ML PUMP PRIME; 200ML OVER A 30 MINUTE PERIOD; 50CC PER HOUR DRIP
  10. ACCUPRIL [Concomitant]
     Dosage: 20 MG, BID
     Route: 048
     Dates: start: 20050706
  11. PHENYTOIN SODIUM [Concomitant]
     Dosage: 100 MG, UNK
     Route: 048
     Dates: start: 20050713
  12. HEPARIN [Concomitant]
     Dosage: 15000 U, UNK
     Route: 042
     Dates: start: 20051215
  13. PROPRANOLOL [Concomitant]
     Dosage: 80 MG, BID
     Route: 048
  14. NIPRIDE [Concomitant]
     Dosage: 100 MG/250 ML
     Route: 042
     Dates: start: 20051215

REACTIONS (12)
  - ANXIETY [None]
  - UNEVALUABLE EVENT [None]
  - FEAR [None]
  - PAIN [None]
  - INJURY [None]
  - STRESS [None]
  - MULTI-ORGAN FAILURE [None]
  - RENAL IMPAIRMENT [None]
  - RENAL FAILURE [None]
  - DEATH [None]
  - EMOTIONAL DISTRESS [None]
  - RENAL INJURY [None]
